FAERS Safety Report 14418808 (Version 1)
Quarter: 2018Q1

REPORT INFORMATION
  Report Type: Spontaneous
  Country: IL (occurrence: IL)
  Receive Date: 20180122
  Receipt Date: 20180122
  Transmission Date: 20180509
  Serious: Yes (Other)
  Sender: FDA-Public Use
  Company Number: IL-TEVA-2018-IL-847185

PATIENT
  Age: 80 Year
  Sex: Male

DRUGS (7)
  1. RESPRIM [Suspect]
     Active Substance: SULFAMETHOXAZOLE\TRIMETHOPRIM
     Route: 065
  2. NORMITEN [Concomitant]
     Active Substance: ATENOLOL
  3. FUSID [Concomitant]
     Active Substance: FUROSEMIDE
  4. METFORMIN [Concomitant]
     Active Substance: METFORMIN HYDROCHLORIDE
  5. LAPRIL [Concomitant]
  6. ENALADEX [Suspect]
     Active Substance: ENALAPRIL MALEATE
     Route: 065
  7. ASPIRIN. [Concomitant]
     Active Substance: ASPIRIN

REACTIONS (1)
  - Renal tubular acidosis [Unknown]
